FAERS Safety Report 16728900 (Version 1)
Quarter: 2019Q3

REPORT INFORMATION
  Report Type: Spontaneous
  Country: US (occurrence: US)
  Receive Date: 20190822
  Receipt Date: 20190822
  Transmission Date: 20191005
  Serious: No
  Sender: FDA-Public Use
  Company Number: US-MALLINCKRODT-T201805233

PATIENT
  Age: 79 Year
  Sex: Female

DRUGS (1)
  1. OXYCODONE [Suspect]
     Active Substance: OXYCODONE
     Indication: PAIN
     Dosage: 1.5 TABLETS EVERY 4-6 HOURS
     Route: 048
     Dates: start: 2018

REACTIONS (3)
  - Therapeutic response shortened [Unknown]
  - Frustration tolerance decreased [Unknown]
  - Cough [Unknown]
